FAERS Safety Report 12812629 (Version 1)
Quarter: 2016Q4

REPORT INFORMATION
  Report Type: Spontaneous
  Country: US (occurrence: US)
  Receive Date: 20161005
  Receipt Date: 20161005
  Transmission Date: 20170207
  Serious: No
  Sender: FDA-Public Use
  Company Number: US-TAIHO ONCOLOGY INC-EU-2016-02560

PATIENT
  Sex: Female

DRUGS (8)
  1. TIROSINT [Concomitant]
     Active Substance: LEVOTHYROXINE SODIUM
     Dosage: NI
  2. LASIX [Concomitant]
     Active Substance: FUROSEMIDE
     Dosage: NI
  3. AMITIZA [Concomitant]
     Active Substance: LUBIPROSTONE
     Dosage: NI
  4. SPIRONOLACTONE. [Concomitant]
     Active Substance: SPIRONOLACTONE
     Dosage: NI
  5. LONSURF [Suspect]
     Active Substance: TIPIRACIL HYDROCHLORIDE\TRIFLURIDINE
     Indication: COLON CANCER
     Route: 048
     Dates: start: 2016, end: 2016
  6. ACETYLSALICYLIC ACID [Concomitant]
     Active Substance: ASPIRIN
     Dosage: NI
  7. SENNA LAXATIVE [Concomitant]
     Active Substance: SENNOSIDES
     Dosage: NI
  8. PARACETAMOL/OXYCODONE HYDROCHLORIDE [Concomitant]
     Dosage: NI

REACTIONS (1)
  - Positron emission tomogram abnormal [Unknown]

NARRATIVE: CASE EVENT DATE: 2016
